FAERS Safety Report 16187076 (Version 2)
Quarter: 2019Q2

REPORT INFORMATION
  Report Type: Spontaneous
  Country: JP (occurrence: JP)
  Receive Date: 20190411
  Receipt Date: 20190412
  Transmission Date: 20190711
  Serious: Yes (Other)
  Sender: FDA-Public Use
  Company Number: JP-ARBOR PHARMACEUTICALS, LLC-JP-2018ARB000320

PATIENT
  Sex: Female

DRUGS (8)
  1. GABAPENTIN ENACARBIL [Suspect]
     Active Substance: GABAPENTIN ENACARBIL
     Dosage: 600 MG, QD AT NIGHT
     Route: 048
     Dates: start: 20180216
  2. GABAPENTIN ENACARBIL [Suspect]
     Active Substance: GABAPENTIN ENACARBIL
     Indication: RESTLESS LEGS SYNDROME
     Dosage: UNK
     Route: 048
  3. GABAPENTIN ENACARBIL [Suspect]
     Active Substance: GABAPENTIN ENACARBIL
     Dosage: 600 MG, QD AT BEDTIME
     Route: 048
  4. MYSLEE [Suspect]
     Active Substance: ZOLPIDEM TARTRATE
     Indication: PRODUCT USED FOR UNKNOWN INDICATION
     Dosage: UNK
     Route: 048
  5. LANDSEN [Concomitant]
     Active Substance: CLONAZEPAM
     Indication: PRODUCT USED FOR UNKNOWN INDICATION
     Dosage: UNK
  6. GABAPENTIN ENACARBIL [Suspect]
     Active Substance: GABAPENTIN ENACARBIL
     Dosage: 600 MG, QD
     Route: 048
     Dates: start: 201801
  7. GABAPENTIN ENACARBIL [Suspect]
     Active Substance: GABAPENTIN ENACARBIL
     Dosage: 1 DF, QD
     Route: 048
  8. GABAPENTIN ENACARBIL [Suspect]
     Active Substance: GABAPENTIN ENACARBIL
     Dosage: 300 MG, QD AT BEDTIME
     Route: 048

REACTIONS (15)
  - Hunger [Not Recovered/Not Resolved]
  - Somnolence [Not Recovered/Not Resolved]
  - Feeling abnormal [Unknown]
  - Physical deconditioning [Unknown]
  - Nausea [Not Recovered/Not Resolved]
  - Abdominal discomfort [Not Recovered/Not Resolved]
  - Feeling cold [Unknown]
  - Angina pectoris [Unknown]
  - Headache [Recovering/Resolving]
  - Dizziness [Not Recovered/Not Resolved]
  - Somnolence [Unknown]
  - Malaise [Unknown]
  - Dizziness [Unknown]
  - Intentional product misuse [Unknown]
  - Palpitations [Unknown]

NARRATIVE: CASE EVENT DATE: 201802
